FAERS Safety Report 5566928-4 (Version None)
Quarter: 2007Q4

REPORT INFORMATION
  Report Type: 
  Country: None (occurrence: None)
  Receive Date: 20071219
  Receipt Date: 20070313
  Transmission Date: 20080405
  Serious: Yes (Other)
  Sender: FDA-Public Use
  Company Number: US-BRISTOL-MYERS SQUIBB COMPANY-13712005

PATIENT
  Age: 57 Year
  Sex: Female

DRUGS (1)
  1. PRAVACHOL [Suspect]
     Route: 048

REACTIONS (1)
  - MYALGIA [None]
